FAERS Safety Report 4891985-8 (Version None)
Quarter: 2006Q1

REPORT INFORMATION
  Report Type: 
  Country: None (occurrence: None)
  Receive Date: 20060126
  Receipt Date: 20060119
  Transmission Date: 20060701
  Serious: Yes (Other)
  Sender: FDA-Public Use
  Company Number: GB-RB-2636-2006

PATIENT
  Sex: Female
  Weight: 1 kg

DRUGS (1)
  1. BUPRENORPHINE HCL [Suspect]
     Indication: DRUG USE FOR UNKNOWN INDICATION
     Route: 060
     Dates: end: 20060103

REACTIONS (3)
  - PREMATURE BABY [None]
  - SALIVARY HYPERSECRETION [None]
  - SMALL FOR DATES BABY [None]
